FAERS Safety Report 20530888 (Version 1)
Quarter: 2022Q1

REPORT INFORMATION
  Report Type: Spontaneous
  Country: US (occurrence: US)
  Receive Date: 20220301
  Receipt Date: 20220301
  Transmission Date: 20220424
  Serious: No
  Sender: FDA-Public Use
  Company Number: US-IGSA-BIG0014887

PATIENT
  Sex: Female
  Weight: 40.816 kg

DRUGS (5)
  1. PROLASTIN-C LIQUID [Suspect]
     Active Substance: .ALPHA.1-PROTEINASE INHIBITOR HUMAN
     Indication: Alpha-1 antitrypsin deficiency
     Dosage: 2460 MILLIGRAM, Q.WK.
     Route: 042
     Dates: start: 20190426
  2. AVELOX [Concomitant]
     Active Substance: MOXIFLOXACIN HYDROCHLORIDE
  3. VITAMINS [Concomitant]
     Active Substance: VITAMINS
  4. VITAMIN C FORMULA [Concomitant]
  5. VITAMIN D NOS [Concomitant]
     Active Substance: VITAMIN D NOS

REACTIONS (3)
  - Dehydration [Not Recovered/Not Resolved]
  - Thirst [Not Recovered/Not Resolved]
  - Micturition urgency [Not Recovered/Not Resolved]
